FAERS Safety Report 7625456 (Version 2)
Quarter: 2013Q4

REPORT INFORMATION
  Report Type: Spontaneous
  Country: US (occurrence: US)
  Receive Date: 20101012
  Receipt Date: 20131006
  Transmission Date: 20140711
  Serious: Yes (Other)
  Sender: FDA-Public Use
  Company Number: US-PFIZER INC-2010124527

PATIENT
  Age: 44 Year
  Sex: Male
  Weight: 62.13 kg

DRUGS (10)
  1. RELPAX [Suspect]
     Indication: MIGRAINE
     Dosage: 40 MG, 1X/DAY (QD), PRN
     Route: 048
  2. RELPAX [Suspect]
     Indication: HEADACHE
  3. TESTOSTERONE [Concomitant]
     Indication: PITUITARY TUMOUR REMOVAL
     Dosage: 0.2 ML, UNK
     Route: 062
  4. DIAZEPAM [Concomitant]
     Dosage: 10 MG, UNK
     Route: 048
  5. LEVOTHYROXINE [Concomitant]
     Dosage: 0.075 MG, 1X/DAY
     Route: 048
  6. OXYCODONE [Concomitant]
     Indication: PAIN
     Dosage: 6 MG, UNK
     Route: 048
  7. NADOLOL [Concomitant]
     Indication: HYPOTENSION
     Dosage: 5 MG, 1X/DAY
     Route: 048
  8. PREDNISONE [Concomitant]
     Dosage: 10 MG, 1X/DAY
     Route: 048
  9. ZOLPIDEM [Concomitant]
     Dosage: 20 MG, AS NEEDED
     Route: 048
  10. NORDITROPIN [Concomitant]
     Dosage: 0.2 MG, UNK

REACTIONS (6)
  - Memory impairment [Unknown]
  - Pituitary tumour [Unknown]
  - Brain neoplasm [Unknown]
  - Road traffic accident [Unknown]
  - Cervical vertebral fracture [Unknown]
  - Migraine [Unknown]
